FAERS Safety Report 15585316 (Version 1)
Quarter: 2018Q4

REPORT INFORMATION
  Report Type: Spontaneous
  Country: ES (occurrence: ES)
  Receive Date: 20181105
  Receipt Date: 20181105
  Transmission Date: 20190205
  Serious: Yes (Death, Hospitalization, Other)
  Sender: FDA-Public Use
  Company Number: ES-GLAXOSMITHKLINE-ES2018GSK200417

PATIENT
  Age: 44 Year
  Sex: Male

DRUGS (1)
  1. VENTOLIN [Suspect]
     Active Substance: ALBUTEROL SULFATE
     Indication: PRODUCT USED FOR UNKNOWN INDICATION
     Dosage: UNK

REACTIONS (13)
  - Pneumonia [Fatal]
  - Choking [Unknown]
  - Pyrexia [Unknown]
  - Pain [Unknown]
  - Avian influenza [Fatal]
  - Nervous system disorder [Fatal]
  - Cardiac failure [Unknown]
  - Malaise [Unknown]
  - Klebsiella infection [Unknown]
  - Renal impairment [Unknown]
  - Dyspnoea [Unknown]
  - Cough [Unknown]
  - Respiratory tract infection [Unknown]

NARRATIVE: CASE EVENT DATE: 20160130
